FAERS Safety Report 6409615-2 (Version None)
Quarter: 2009Q4

REPORT INFORMATION
  Report Type: 
  Country: None (occurrence: None)
  Receive Date: 20091022
  Receipt Date: 20091009
  Transmission Date: 20100525
  Serious: Yes (Death)
  Sender: FDA-Public Use
  Company Number: JP-PFIZER INC-2009283184

PATIENT
  Age: 41 Year

DRUGS (3)
  1. ZOLOFT [Suspect]
     Indication: MAJOR DEPRESSION
     Dosage: 25 MG, 1X/DAY
     Route: 048
     Dates: start: 20090615, end: 20090621
  2. ZOLOFT [Suspect]
     Dosage: 50 MG, 1X/DAY
     Route: 048
     Dates: start: 20090622, end: 20090628
  3. ZOLOFT [Suspect]
     Dosage: 100 MG, 1X/DAY
     Dates: start: 20090629, end: 20090712

REACTIONS (5)
  - COMPLETED SUICIDE [None]
  - INSOMNIA [None]
  - NAUSEA [None]
  - RESTLESSNESS [None]
  - WITHDRAWAL SYNDROME [None]
